FAERS Safety Report 20002275 (Version 1)
Quarter: 2021Q4

REPORT INFORMATION
  Report Type: Report from Study
  Country: MX (occurrence: MX)
  Receive Date: 20211027
  Receipt Date: 20211027
  Transmission Date: 20220303
  Serious: Yes (Other)
  Sender: FDA-Public Use
  Company Number: MX-NOVARTISPH-NVSC2021MX244883

PATIENT
  Sex: Female
  Weight: 100 kg

DRUGS (2)
  1. EXFORGE HCT [Suspect]
     Active Substance: AMLODIPINE BESYLATE\HYDROCHLOROTHIAZIDE\VALSARTAN
     Indication: Hypertension
     Dosage: 1 DF, QD (10/320/25MG)
     Route: 048
     Dates: start: 20200415
  2. EXFORGE HCT [Suspect]
     Active Substance: AMLODIPINE BESYLATE\HYDROCHLOROTHIAZIDE\VALSARTAN
     Dosage: 1.5 DF, 1 IN THE MORNING AND ? AT NIGHT
     Route: 048

REACTIONS (2)
  - Eye disorder [Unknown]
  - Inappropriate schedule of product administration [Recovering/Resolving]
